FAERS Safety Report 5958943-3 (Version None)
Quarter: 2008Q4

REPORT INFORMATION
  Report Type: 
  Country: None (occurrence: None)
  Receive Date: 20081114
  Receipt Date: 20081112
  Transmission Date: 20090506
  Serious: Yes (Other)
  Sender: FDA-Public Use
  Company Number: 200814123

PATIENT
  Age: 51 Year
  Sex: Female
  Weight: 128.8216 kg

DRUGS (6)
  1. VIVAGLOBIN [Suspect]
     Indication: IMMUNODEFICIENCY COMMON VARIABLE
     Dosage: 50 MG Q1W SC : SC : SC : SC
     Route: 058
     Dates: start: 20080919, end: 20080926
  2. VIVAGLOBIN [Suspect]
     Indication: IMMUNODEFICIENCY COMMON VARIABLE
     Dosage: 50 MG Q1W SC : SC : SC : SC
     Route: 058
     Dates: start: 20080919, end: 20080926
  3. VIVAGLOBIN [Suspect]
     Indication: IMMUNODEFICIENCY COMMON VARIABLE
     Dosage: 50 MG Q1W SC : SC : SC : SC
     Route: 058
     Dates: start: 20080919, end: 20080926
  4. VIVAGLOBIN [Suspect]
     Indication: IMMUNODEFICIENCY COMMON VARIABLE
     Dosage: 50 MG Q1W SC : SC : SC : SC
     Route: 058
     Dates: start: 20060915
  5. VIVAGLOBIN [Suspect]
  6. VIVAGLOBIN [Suspect]

REACTIONS (1)
  - BLOOD GLUCOSE INCREASED [None]
